FAERS Safety Report 12708919 (Version 2)
Quarter: 2016Q4

REPORT INFORMATION
  Report Type: Spontaneous
  Country: EG (occurrence: EG)
  Receive Date: 20160901
  Receipt Date: 20161014
  Transmission Date: 20170207
  Serious: Yes (Life-Threatening, Other)
  Sender: FDA-Public Use
  Company Number: EG-ELI_LILLY_AND_COMPANY-EG201608014224

PATIENT
  Sex: Female

DRUGS (7)
  1. ZYPREXA [Suspect]
     Active Substance: OLANZAPINE
     Dosage: 10 MG, UNKNOWN
     Route: 065
     Dates: start: 2016
  2. PROZAC [Suspect]
     Active Substance: FLUOXETINE HYDROCHLORIDE
     Indication: PRODUCT USED FOR UNKNOWN INDICATION
     Dosage: UNK, UNKNOWN
     Route: 065
  3. ZYPREXA [Suspect]
     Active Substance: OLANZAPINE
     Indication: PSYCHOMOTOR HYPERACTIVITY
  4. ZYPREXA [Suspect]
     Active Substance: OLANZAPINE
     Indication: PRODUCT USED FOR UNKNOWN INDICATION
     Dosage: 10 MG, UNKNOWN
     Route: 065
  5. ZYPREXA [Suspect]
     Active Substance: OLANZAPINE
     Indication: INSOMNIA
     Dosage: 5 MG, UNKNOWN
     Route: 065
     Dates: start: 2016
  6. XANAX [Suspect]
     Active Substance: ALPRAZOLAM
     Dosage: 25 MG, UNKNOWN
     Route: 065
  7. XANAX [Suspect]
     Active Substance: ALPRAZOLAM
     Indication: PRODUCT USED FOR UNKNOWN INDICATION
     Dosage: UNK, UNKNOWN
     Route: 065

REACTIONS (6)
  - Screaming [Unknown]
  - Intentional self-injury [Unknown]
  - Aggression [Unknown]
  - Insomnia [Unknown]
  - Suicide attempt [Unknown]
  - Psychomotor hyperactivity [Unknown]

NARRATIVE: CASE EVENT DATE: 2016
